FAERS Safety Report 15602064 (Version 3)
Quarter: 2020Q3

REPORT INFORMATION
  Report Type: Spontaneous
  Country: TW (occurrence: TW)
  Receive Date: 20181109
  Receipt Date: 20200723
  Transmission Date: 20201102
  Serious: Yes (Death, Hospitalization)
  Sender: FDA-Public Use
  Company Number: TW-ACTELION-A-CH2018-181302

PATIENT
  Age: 63 Year
  Sex: Female

DRUGS (2)
  1. TRACLEER [Suspect]
     Active Substance: BOSENTAN
     Indication: PULMONARY ARTERIAL HYPERTENSION
     Dosage: 125 MG, BID
     Route: 048
     Dates: start: 20181006
  2. TRACLEER [Suspect]
     Active Substance: BOSENTAN
     Dosage: 62.5 MG, BID
     Route: 048
     Dates: start: 201809, end: 20181005

REACTIONS (5)
  - Arrhythmia [Recovered/Resolved]
  - Loss of consciousness [Fatal]
  - Cardio-respiratory arrest [Fatal]
  - Death [Fatal]
  - Cardiac ablation [Unknown]

NARRATIVE: CASE EVENT DATE: 20181022
